FAERS Safety Report 25323189 (Version 1)
Quarter: 2025Q2

REPORT INFORMATION
  Report Type: Spontaneous
  Country: ES (occurrence: ES)
  Receive Date: 20250516
  Receipt Date: 20250516
  Transmission Date: 20250716
  Serious: Yes (Other)
  Sender: ORGANON
  Company Number: None

PATIENT
  Age: 39 Year
  Sex: Male
  Weight: 90 kg

DRUGS (1)
  1. FINASTERIDE [Suspect]
     Active Substance: FINASTERIDE
     Indication: Androgenetic alopecia
     Dosage: 0.5MG/DAY
     Route: 048
     Dates: start: 20250428, end: 20250504

REACTIONS (3)
  - Depression [Recovering/Resolving]
  - Anxiety [Recovering/Resolving]
  - Testicular pain [Recovering/Resolving]

NARRATIVE: CASE EVENT DATE: 20250430
